FAERS Safety Report 16186159 (Version 1)
Quarter: 2019Q2

REPORT INFORMATION
  Report Type: Spontaneous
  Country: FR (occurrence: FR)
  Receive Date: 20190411
  Receipt Date: 20190411
  Transmission Date: 20190711
  Serious: Yes (Life-Threatening, Hospitalization, Other)
  Sender: FDA-Public Use
  Company Number: FR-MYLANLABS-2019M1033726

PATIENT
  Age: 22 Year
  Sex: Male

DRUGS (5)
  1. SUFENTANIL [Suspect]
     Active Substance: SUFENTANIL
     Indication: ANAESTHESIA
     Dosage: 15 INTERNATIONAL UNIT
     Route: 042
     Dates: start: 20180919, end: 20180919
  2. KETAMINE [Suspect]
     Active Substance: KETAMINE
     Indication: PRODUCT USED FOR UNKNOWN INDICATION
     Dosage: 15 INTERNATIONAL UNIT
     Route: 042
     Dates: start: 20180919, end: 20180919
  3. PROPOFOL. [Suspect]
     Active Substance: PROPOFOL
     Indication: ANAESTHESIA
     Dosage: 150 MILLIGRAM
     Route: 042
     Dates: start: 20180919, end: 20180919
  4. ATRACURIUM [Suspect]
     Active Substance: ATRACURIUM
     Indication: ANAESTHESIA
     Dosage: 35 MILLIGRAM
     Route: 042
     Dates: start: 20180919, end: 20180919
  5. DEXAMETHASONE. [Suspect]
     Active Substance: DEXAMETHASONE
     Indication: ANAESTHESIA
     Dosage: 8 MILLIGRAM
     Route: 042
     Dates: start: 20180919, end: 20180919

REACTIONS (2)
  - Erythema [Recovered/Resolved]
  - Anaphylactoid shock [Recovered/Resolved]

NARRATIVE: CASE EVENT DATE: 20180919
